FAERS Safety Report 20967471 (Version 1)
Quarter: 2022Q2

REPORT INFORMATION
  Report Type: Spontaneous
  Country: US (occurrence: None)
  Receive Date: 20220616
  Receipt Date: 20220616
  Transmission Date: 20220721
  Serious: Yes (Hospitalization)
  Sender: FDA-Public Use
  Company Number: None

PATIENT
  Age: 64 Year
  Sex: Male

DRUGS (1)
  1. ENBREL [Suspect]
     Active Substance: ETANERCEPT
     Indication: Ankylosing spondylitis
     Dosage: FREQUENCY: OTHER
     Route: 058
     Dates: start: 202204, end: 202204

REACTIONS (4)
  - Urticaria [None]
  - Pharyngeal swelling [None]
  - Mouth swelling [None]
  - Therapy interrupted [None]

NARRATIVE: CASE EVENT DATE: 20220503
